FAERS Safety Report 14548773 (Version 1)
Quarter: 2018Q1

REPORT INFORMATION
  Report Type: Spontaneous
  Country: US (occurrence: US)
  Receive Date: 20180219
  Receipt Date: 20180219
  Transmission Date: 20180509
  Serious: No
  Sender: FDA-Public Use
  Company Number: US-ROCHE-1930560

PATIENT
  Age: 79 Year
  Sex: Female

DRUGS (3)
  1. XOLAIR [Suspect]
     Active Substance: OMALIZUMAB
     Indication: BLOOD IMMUNOGLOBULIN E DECREASED
     Route: 058
  2. GABAPENTIN. [Concomitant]
     Active Substance: GABAPENTIN
  3. LYRICA [Concomitant]
     Active Substance: PREGABALIN

REACTIONS (2)
  - Arthralgia [Unknown]
  - Off label use [Unknown]
